FAERS Safety Report 4591225-3 (Version None)
Quarter: 2005Q1

REPORT INFORMATION
  Report Type: 
  Country: None (occurrence: None)
  Receive Date: 20050222
  Receipt Date: 20050203
  Transmission Date: 20050727
  Serious: Yes (Death)
  Sender: FDA-Public Use
  Company Number: 800272

PATIENT
  Age: 63 Year
  Sex: Male
  Weight: 59 kg

DRUGS (7)
  1. EXTRANEAL [Suspect]
     Indication: PERITONEAL DIALYSIS
     Dosage: 2000 ML; QD; INTRAPERITONEAL
     Route: 033
     Dates: start: 20031015, end: 20041014
  2. PHENYTOIN [Suspect]
     Indication: EPILEPSY
     Dosage: 200 MG; QD; ORAL
     Route: 048
     Dates: start: 20021006, end: 20041014
  3. TRYPTANOL (UNCODED) [Suspect]
     Indication: INSOMNIA
     Dosage: 10 MG; QD; ORAL
     Route: 048
     Dates: start: 20040804, end: 20041014
  4. DIANEAL [Concomitant]
  5. SIGMART [Concomitant]
  6. EXCERGAN [Concomitant]
  7. ASPARA K [Concomitant]

REACTIONS (6)
  - AMPUTATION [None]
  - ELECTROCARDIOGRAM QT PROLONGED [None]
  - INSOMNIA [None]
  - NASOPHARYNGITIS [None]
  - PHANTOM PAIN [None]
  - PRURITUS [None]
